FAERS Safety Report 6729156-2 (Version None)
Quarter: 2010Q2

REPORT INFORMATION
  Report Type: 
  Country: None (occurrence: None)
  Receive Date: 20100517
  Receipt Date: 20100414
  Transmission Date: 20101027
  Serious: No
  Sender: FDA-Public Use
  Company Number: US-ABBOTT-10P-163-0638524-00

PATIENT
  Sex: Male

DRUGS (7)
  1. SIMCOR [Suspect]
     Indication: DRUG USE FOR UNKNOWN INDICATION
     Dates: start: 20100401
  2. UNKNOWN MEDICATION [Concomitant]
     Indication: DRUG USE FOR UNKNOWN INDICATION
  3. UNKNOWN MEDICATION [Concomitant]
  4. UNKNOWN MEDICATION [Concomitant]
  5. UNKNOWN MEDICATION [Concomitant]
  6. UNKNOWN MEDICATION [Concomitant]
  7. UNKNOWN MEDICATION [Concomitant]

REACTIONS (1)
  - COUGH [None]
